FAERS Safety Report 11572850 (Version 1)
Quarter: 2015Q3

REPORT INFORMATION
  Report Type: Spontaneous
  Country: US (occurrence: US)
  Receive Date: 20150916
  Receipt Date: 20150916
  Transmission Date: 20151125
  Serious: No
  Sender: FDA-Public Use
  Company Number: US-ELI_LILLY_AND_COMPANY-US200910005227

PATIENT
  Age: 60 Year
  Sex: Female

DRUGS (1)
  1. FORTEO [Suspect]
     Active Substance: TERIPARATIDE
     Dosage: 20 UG, DAILY (1/D)
     Dates: start: 200907, end: 20100101

REACTIONS (9)
  - Fall [Unknown]
  - Concussion [Recovering/Resolving]
  - Mental impairment [Not Recovered/Not Resolved]
  - Post concussion syndrome [Not Recovered/Not Resolved]
  - Injection site haemorrhage [Unknown]
  - Injection site bruising [Recovering/Resolving]
  - Injection site erythema [Unknown]
  - Vascular calcification [Unknown]
  - Injection site pain [Unknown]

NARRATIVE: CASE EVENT DATE: 2009
